FAERS Safety Report 9103078 (Version 2)
Quarter: 2013Q4

REPORT INFORMATION
  Report Type: Report from Study
  Country: CO (occurrence: CO)
  Receive Date: 20130218
  Receipt Date: 20131111
  Transmission Date: 20140711
  Serious: Yes (Death, Other)
  Sender: FDA-Public Use
  Company Number: CO-ELI_LILLY_AND_COMPANY-CO201301009007

PATIENT
  Age: 84 Year
  Sex: Female

DRUGS (1)
  1. TERIPARATIDE [Suspect]
     Indication: OSTEOPOROSIS
     Dosage: 20 UG, QD
     Route: 058
     Dates: start: 201211, end: 20130108

REACTIONS (5)
  - Death [Fatal]
  - Retinal detachment [Unknown]
  - Medication error [Unknown]
  - Therapy cessation [Unknown]
  - Eye inflammation [Unknown]
